FAERS Safety Report 25661250 (Version 1)
Quarter: 2025Q3

REPORT INFORMATION
  Report Type: Spontaneous
  Country: US (occurrence: US)
  Receive Date: 20250808
  Receipt Date: 20250808
  Transmission Date: 20251021
  Serious: No
  Sender: APOTEX
  Company Number: US-APOTEX-2025AP011394

PATIENT
  Age: 40 Year
  Sex: Female

DRUGS (3)
  1. TAMOXIFEN [Interacting]
     Active Substance: TAMOXIFEN
     Indication: Invasive ductal breast carcinoma
     Route: 065
     Dates: start: 20170719, end: 20170924
  2. TAMOXIFEN [Interacting]
     Active Substance: TAMOXIFEN
     Indication: Hormone receptor positive HER2 negative breast cancer
  3. BUPROPION [Interacting]
     Active Substance: BUPROPION
     Indication: Depression
     Route: 065
     Dates: end: 20170721

REACTIONS (2)
  - Drug interaction [Unknown]
  - Anxiety [Recovered/Resolved]

NARRATIVE: CASE EVENT DATE: 20170701
